FAERS Safety Report 5377557-X (Version None)
Quarter: 2007Q3

REPORT INFORMATION
  Report Type: 
  Country: None (occurrence: None)
  Receive Date: 20070703
  Receipt Date: 20070626
  Transmission Date: 20080115
  Serious: Yes (Hospitalization)
  Sender: FDA-Public Use
  Company Number: US-JNJFOC-20070606580

PATIENT
  Age: 26 Year
  Sex: Male

DRUGS (6)
  1. RISPERDAL CONSTA [Suspect]
     Indication: PSYCHOTIC DISORDER
     Route: 030
  2. INVEGA [Suspect]
  3. INVEGA [Suspect]
     Indication: PSYCHOTIC DISORDER
  4. DEPAKOTE [Concomitant]
  5. THYROID TAB [Concomitant]
     Indication: THYROID DISORDER
  6. CHOLESTEROL MEDICATION [Concomitant]
     Indication: BLOOD CHOLESTEROL INCREASED

REACTIONS (3)
  - ABNORMAL BEHAVIOUR [None]
  - AKATHISIA [None]
  - DYSKINESIA [None]
